FAERS Safety Report 5302612-X (Version None)
Quarter: 2007Q2

REPORT INFORMATION
  Report Type: 
  Country: None (occurrence: None)
  Receive Date: 20070419
  Receipt Date: 20070409
  Transmission Date: 20071010
  Serious: Yes (Life-Threatening, Hospitalization, Other)
  Sender: FDA-Public Use
  Company Number: DZ-PFIZER INC-2007028608

PATIENT
  Age: 22 Year
  Sex: Female

DRUGS (3)
  1. TAHOR [Suspect]
     Route: 048
     Dates: start: 20070325, end: 20070325
  2. CORDARONE [Suspect]
     Route: 048
     Dates: start: 20070325, end: 20070325
  3. RISORDAN [Suspect]
     Route: 048
     Dates: start: 20070325, end: 20070325

REACTIONS (4)
  - BRADYCARDIA [None]
  - INTENTIONAL OVERDOSE [None]
  - MIOSIS [None]
  - VULVAL DISORDER [None]
